FAERS Safety Report 19176394 (Version 1)
Quarter: 2021Q2

REPORT INFORMATION
  Report Type: Spontaneous
  Country: FR (occurrence: FR)
  Receive Date: 20210424
  Receipt Date: 20210424
  Transmission Date: 20210717
  Serious: Yes (Other)
  Sender: FDA-Public Use
  Company Number: FR-MACLEODS PHARMACEUTICALS US LTD-MAC2021030904

PATIENT

DRUGS (2)
  1. TRAMADOL 50 MG [Suspect]
     Active Substance: TRAMADOL
     Indication: BLADDER PAIN
     Dosage: 50 MILLIGRAM EVERY HOUR, I.E. 10 TO 12 PER DAY
     Route: 065
     Dates: start: 2013
  2. TRAMADOL. [Suspect]
     Active Substance: TRAMADOL
     Indication: BLADDER PAIN
     Dosage: UNK, SUSTAINED RELEASE
     Route: 065

REACTIONS (4)
  - Hyperaesthesia [Recovered/Resolved]
  - Overdose [Recovered/Resolved]
  - Drug dependence [Recovered/Resolved]
  - Intentional product misuse [Recovered/Resolved]
